FAERS Safety Report 4504248-7 (Version None)
Quarter: 2004Q4

REPORT INFORMATION
  Report Type: 
  Country: None (occurrence: None)
  Receive Date: 20041116
  Receipt Date: 20041116
  Transmission Date: 20050328
  Serious: Yes (Hospitalization)
  Sender: FDA-Public Use
  Company Number: None

PATIENT
  Age: 50 Year
  Sex: Male
  Weight: 101.6057 kg

DRUGS (11)
  1. METOPROLOL 25 MG BID 7/9/04-7/13/04 [Suspect]
     Indication: CARDIAC FAILURE CONGESTIVE
     Dosage: 25MG BID
     Dates: start: 20040709, end: 20040713
  2. METOPROLOL 25 MG BID 7/9/04-7/13/04 [Suspect]
     Indication: HYPERTENSION
     Dosage: 25MG BID
     Dates: start: 20040709, end: 20040713
  3. BUMETANIDE [Suspect]
     Dosage: 2MG DAILY
     Dates: start: 20040629, end: 20040713
  4. LISINOPRIL [Suspect]
     Dosage: 20MG DAILY
     Dates: start: 20040629
  5. COUMADIN [Concomitant]
  6. CLOPIDOGREL BISULFATE [Concomitant]
  7. HYDROCODONE 7.5/ACETAMINOPHEN [Concomitant]
  8. DIAZEPAM [Concomitant]
  9. METOPROLOL TARTRATE [Concomitant]
  10. NITROGLYERIN [Concomitant]
  11. POTASSIUM CL [Concomitant]

REACTIONS (1)
  - HYPOTENSION [None]
